APPROVED DRUG PRODUCT: PIPERACILLIN AND TAZOBACTAM
Active Ingredient: PIPERACILLIN SODIUM; TAZOBACTAM SODIUM
Strength: EQ 2GM BASE/VIAL;EQ 250MG BASE/VIAL
Dosage Form/Route: INJECTABLE;INJECTION
Application: A065523 | Product #001 | TE Code: AP
Applicant: ISTITUTO BIOCHIMICO ITALIANO SPA
Approved: May 31, 2011 | RLD: No | RS: No | Type: RX